FAERS Safety Report 14884179 (Version 1)
Quarter: 2018Q2

REPORT INFORMATION
  Report Type: Spontaneous
  Country: US (occurrence: US)
  Receive Date: 20180511
  Receipt Date: 20180511
  Transmission Date: 20180711
  Serious: Yes (Hospitalization, Other)
  Sender: FDA-Public Use
  Company Number: US-TEVA-732412USA

PATIENT
  Age: 51 Year
  Sex: Female

DRUGS (35)
  1. RELPAX [Suspect]
     Active Substance: ELETRIPTAN HYDROBROMIDE
     Route: 048
  2. LISINOPRIL. [Concomitant]
     Active Substance: LISINOPRIL
     Dosage: 5 MG, DAILY (10 MG, 1/2 DAILY)
     Route: 065
  3. ZOLPIDEM TARTRATE. [Concomitant]
     Active Substance: ZOLPIDEM TARTRATE
     Dosage: 10 MILLIGRAM DAILY; BEDTIME
     Route: 065
  4. METAXALONE. [Concomitant]
     Active Substance: METAXALONE
     Dosage: 2400 MILLIGRAM DAILY;
     Route: 065
  5. ACETAMINOPHEN W/HYDROCODONE [Concomitant]
     Active Substance: ACETAMINOPHEN\HYDROCODONE
     Dosage: HYDROCODONE: 5MG/ACETAMINOPHEN: 325MG
     Route: 048
  6. RESTASIS [Concomitant]
     Active Substance: CYCLOSPORINE
     Dosage: 2 GTT DAILY; 1 DROP TWICE A DAY IN EACH EYE
     Route: 047
  7. DEXILANT [Concomitant]
     Active Substance: DEXLANSOPRAZOLE
     Dosage: 60 MILLIGRAM DAILY;
     Route: 048
  8. LISINOPRIL. [Concomitant]
     Active Substance: LISINOPRIL
     Dosage: 2.5 MILLIGRAM DAILY;
     Route: 065
  9. CLONAZEPAM. [Concomitant]
     Active Substance: CLONAZEPAM
     Dosage: 4.5 MILLIGRAM DAILY;
     Route: 065
  10. AMBIEN [Concomitant]
     Active Substance: ZOLPIDEM TARTRATE
     Dosage: 10 MILLIGRAM DAILY; BEDTIME
     Route: 065
  11. ACETAMINOPHEN W/HYDROCODONE [Concomitant]
     Active Substance: ACETAMINOPHEN\HYDROCODONE
     Dosage: HYDROCODONE: 10MG/ACETAMINOPHEN: 325MG
     Route: 065
  12. LYRICA [Suspect]
     Active Substance: PREGABALIN
     Dosage: 150 MILLIGRAM DAILY;
     Route: 065
  13. LYRICA [Suspect]
     Active Substance: PREGABALIN
     Route: 065
  14. RESTASIS [Concomitant]
     Active Substance: CYCLOSPORINE
     Dosage: 1 PERCENT DAILY; .5 % OP; DOSE X2
     Route: 047
  15. SYNTHROID [Concomitant]
     Active Substance: LEVOTHYROXINE SODIUM
     Dosage: .025 MILLIGRAM DAILY;
     Route: 065
  16. DULOXETINE. [Concomitant]
     Active Substance: DULOXETINE
     Dosage: 120 MILLIGRAM DAILY; IN THE MORNING
     Route: 048
  17. SPIRIVA [Concomitant]
     Active Substance: TIOTROPIUM BROMIDE MONOHYDRATE
     Route: 065
  18. PROAIR HFA [Suspect]
     Active Substance: ALBUTEROL SULFATE
     Route: 065
  19. NASONEX [Concomitant]
     Active Substance: MOMETASONE FUROATE
     Dosage: 34 GRAM DAILY; 17G/SPRAY NASAL SPRAY TWICE A DAY
     Route: 045
  20. ALBUTEROL. [Concomitant]
     Active Substance: ALBUTEROL
     Dosage: AS NEEDED
     Route: 065
  21. ZETIA [Concomitant]
     Active Substance: EZETIMIBE
     Dosage: 10 MILLIGRAM DAILY;
     Route: 048
  22. B12 COMPLEX [Concomitant]
     Route: 065
  23. LIDOCAINE. [Concomitant]
     Active Substance: LIDOCAINE
  24. VESICARE [Concomitant]
     Active Substance: SOLIFENACIN SUCCINATE
     Dosage: 5 MG, 1X/DAY
  25. NORCO [Concomitant]
     Active Substance: ACETAMINOPHEN\HYDROCODONE BITARTRATE
     Dosage: HYDROCODONE BITARTRATE 7.5, PARACETAMOL
     Route: 065
  26. CYMBALTA [Concomitant]
     Active Substance: DULOXETINE HYDROCHLORIDE
     Dosage: 120 MILLIGRAM DAILY;
     Route: 065
  27. ADVAIR HFA [Concomitant]
     Active Substance: FLUTICASONE PROPIONATE\SALMETEROL XINAFOATE
     Dosage: FLUTICASONE PROPIONATE 250MCG]/ SALMETEROL XINAFOATE: 50MCG
     Route: 065
  28. IRON [Concomitant]
     Active Substance: IRON
     Route: 065
  29. NASONEX [Concomitant]
     Active Substance: MOMETASONE FUROATE
  30. VESICARE [Concomitant]
     Active Substance: SOLIFENACIN SUCCINATE
     Dosage: 10 MG, 1X/DAY [IN?MORNING]
  31. LISINOPRIL. [Concomitant]
     Active Substance: LISINOPRIL
     Dosage: 10 MILLIGRAM DAILY;
     Route: 065
  32. OMEGA 3 [Concomitant]
     Active Substance: OMEGA-3 FATTY ACIDS
     Route: 065
  33. CALCIUM D [Concomitant]
     Active Substance: CALCIUM\VITAMIN D
     Route: 065
  34. SKELAXIN [Concomitant]
     Active Substance: METAXALONE
     Dosage: 2400 MILLIGRAM DAILY;
     Route: 065
  35. CLONAZEPAM. [Concomitant]
     Active Substance: CLONAZEPAM
     Route: 048

REACTIONS (10)
  - Psychomotor hyperactivity [Unknown]
  - Hair growth abnormal [Unknown]
  - Pneumonia [Unknown]
  - Renal failure [Unknown]
  - Streptococcal bacteraemia [Unknown]
  - Anoxia [Unknown]
  - Thrombosis [Unknown]
  - Hair texture abnormal [Unknown]
  - Memory impairment [Unknown]
  - White blood cell count increased [Unknown]
